FAERS Safety Report 5287331-0 (Version None)
Quarter: 2007Q1

REPORT INFORMATION
  Report Type: 
  Country: None (occurrence: None)
  Receive Date: 20070116
  Receipt Date: 20061002
  Transmission Date: 20070707
  Serious: No
  Sender: FDA-Public Use
  Company Number: 2006SP004370

PATIENT
  Age: 72 Year
  Sex: Male
  Weight: 62.1428 kg

DRUGS (2)
  1. LUNESTA [Suspect]
     Indication: INSOMNIA
     Dosage: 3 MG;HS;ORAL
     Route: 048
     Dates: start: 20060101, end: 20060101
  2. ZESTRIL [Concomitant]

REACTIONS (2)
  - HYPERTENSION [None]
  - VERTIGO POSITIONAL [None]
